FAERS Safety Report 25771202 (Version 1)
Quarter: 2025Q3

REPORT INFORMATION
  Report Type: Spontaneous
  Country: US (occurrence: US)
  Receive Date: 20250908
  Receipt Date: 20250908
  Transmission Date: 20251021
  Serious: No
  Sender: DOMPE FARMACEUTICI
  Company Number: US-FARMAPROD-202504-1109

PATIENT
  Sex: Female

DRUGS (6)
  1. OXERVATE [Suspect]
     Active Substance: CENEGERMIN-BKBJ
     Indication: Neurotrophic keratopathy
     Route: 047
     Dates: start: 20250225
  2. LUMIFY [Concomitant]
     Active Substance: BRIMONIDINE TARTRATE
  3. REFRESH CLASSIC LUBRICANT EYE DROPS [Concomitant]
  4. MELATONIN [Concomitant]
     Active Substance: MELATONIN
  5. PEPCID AC [Concomitant]
     Active Substance: FAMOTIDINE
  6. KEPPRA [Concomitant]
     Active Substance: LEVETIRACETAM

REACTIONS (1)
  - Therapy interrupted [Unknown]
